FAERS Safety Report 8460102-X (Version None)
Quarter: 2012Q2

REPORT INFORMATION
  Report Type: 
  Country: None (occurrence: None)
  Receive Date: 20120622
  Receipt Date: 20120618
  Transmission Date: 20120825
  Serious: Yes (Death)
  Sender: FDA-Public Use
  Company Number: US-ELI_LILLY_AND_COMPANY-US201204007747

PATIENT
  Sex: Male

DRUGS (3)
  1. HUMALOG [Suspect]
     Indication: DIABETES MELLITUS
     Dosage: 12 U, EACH EVENING
  2. HUMALOG [Suspect]
     Dosage: 12 U, EACH EVENING
  3. LANTUS [Concomitant]
     Dosage: UNK UNK, EACH MORNING

REACTIONS (3)
  - DEATH [None]
  - BLOOD GLUCOSE INCREASED [None]
  - DYSPHONIA [None]
